FAERS Safety Report 14208091 (Version 2)
Quarter: 2018Q1

REPORT INFORMATION
  Report Type: Spontaneous
  Country: US (occurrence: US)
  Receive Date: 20171121
  Receipt Date: 20180305
  Transmission Date: 20180508
  Serious: Yes (Death, Other)
  Sender: FDA-Public Use
  Company Number: PHEH2017US037197

PATIENT
  Age: 14 Year
  Sex: Female

DRUGS (3)
  1. KYMRIAH [Suspect]
     Active Substance: TISAGENLECLEUCEL
     Indication: ACUTE LYMPHOCYTIC LEUKAEMIA REFRACTORY
     Dosage: UNK UNK, ONCE/SINGLE
     Route: 042
     Dates: start: 20171109, end: 20171109
  2. TOCILIZUMAB. [Concomitant]
     Active Substance: TOCILIZUMAB
     Indication: CYTOKINE RELEASE SYNDROME
     Dosage: UNK
     Route: 042
     Dates: start: 20171113
  3. PREDNISONE. [Concomitant]
     Active Substance: PREDNISONE
     Indication: CYTOKINE RELEASE SYNDROME
     Dosage: UNK
     Route: 065
     Dates: start: 20171114

REACTIONS (2)
  - White blood cell count increased [Unknown]
  - Leukaemia recurrent [Fatal]

NARRATIVE: CASE EVENT DATE: 20171109
